FAERS Safety Report 26044367 (Version 2)
Quarter: 2025Q4

REPORT INFORMATION
  Report Type: Spontaneous
  Country: CA (occurrence: CA)
  Receive Date: 20251114
  Receipt Date: 20251223
  Transmission Date: 20260117
  Serious: Yes (Death, Life-Threatening)
  Sender: CSL BEHRING
  Company Number: CA-BEH-2025224600

PATIENT
  Age: 64 Year
  Sex: Male

DRUGS (2)
  1. ALBUREX [Suspect]
     Active Substance: ALBUMIN HUMAN
     Indication: Hypoalbuminaemia
     Dosage: UNK
     Route: 065
     Dates: start: 20250302, end: 20250302
  2. ALBUREX [Suspect]
     Active Substance: ALBUMIN HUMAN
     Indication: Ascites
     Dosage: UNK
     Route: 065
     Dates: start: 20250302, end: 20250302

REACTIONS (6)
  - Acute pulmonary oedema [Fatal]
  - Hypoxia [Fatal]
  - Dyspnoea [Fatal]
  - Hypertension [Fatal]
  - Tachypnoea [Fatal]
  - Tachycardia [Fatal]

NARRATIVE: CASE EVENT DATE: 20250302
